FAERS Safety Report 17929572 (Version 1)
Quarter: 2020Q2

REPORT INFORMATION
  Report Type: Spontaneous
  Country: US (occurrence: US)
  Receive Date: 20200623
  Receipt Date: 20200623
  Transmission Date: 20200714
  Serious: No
  Sender: FDA-Public Use
  Company Number: US-ALLERGAN-2003046US

PATIENT
  Age: 19 Year
  Sex: Female

DRUGS (1)
  1. KYBELLA [Suspect]
     Active Substance: DEOXYCHOLIC ACID
     Indication: FAT TISSUE INCREASED
     Dosage: UNK, SINGLE
     Dates: start: 20200114, end: 20200114

REACTIONS (4)
  - Nerve injury [Recovering/Resolving]
  - Injection site pain [Recovering/Resolving]
  - Injection site swelling [Not Recovered/Not Resolved]
  - Muscle disorder [Recovering/Resolving]

NARRATIVE: CASE EVENT DATE: 20200114
